FAERS Safety Report 8288529-X (Version None)
Quarter: 2012Q2

REPORT INFORMATION
  Report Type: 
  Country: None (occurrence: None)
  Receive Date: 20120416
  Receipt Date: 20120131
  Transmission Date: 20120825
  Serious: Yes (Hospitalization, Disabling, Other)
  Sender: FDA-Public Use
  Company Number: JP-PFIZER INC-2011125164

PATIENT
  Age: 78 Year
  Sex: Female

DRUGS (6)
  1. JANUVIA [Concomitant]
     Indication: DIABETES MELLITUS
     Dosage: UNK
     Route: 048
  2. GLYBURIDE [Concomitant]
     Indication: DIABETES MELLITUS
     Dosage: UNK
     Route: 048
  3. ASPIRIN [Concomitant]
     Indication: ANGINA PECTORIS
     Dosage: UNK
     Route: 048
  4. LANSOPRAZOLE [Concomitant]
     Indication: PROPHYLAXIS
     Dosage: UNK
     Route: 048
  5. ATORVASTATIN CALCIUM [Suspect]
     Indication: HYPERCHOLESTEROLAEMIA
     Dosage: 10 MG, 1X/DAY
     Route: 048
     Dates: start: 20101027
  6. METFORMIN HCL [Concomitant]
     Indication: DIABETES MELLITUS
     Dosage: UNK
     Route: 048

REACTIONS (1)
  - LOSS OF CONSCIOUSNESS [None]
